FAERS Safety Report 15963092 (Version 1)
Quarter: 2019Q1

REPORT INFORMATION
  Report Type: Spontaneous
  Country: BR (occurrence: BR)
  Receive Date: 20190214
  Receipt Date: 20190214
  Transmission Date: 20190417
  Serious: Yes (Other)
  Sender: FDA-Public Use
  Company Number: BR-SA-2019SA039103

PATIENT
  Sex: Female

DRUGS (1)
  1. ARAVA [Suspect]
     Active Substance: LEFLUNOMIDE
     Dosage: UNK UNK, UNK
     Route: 065

REACTIONS (1)
  - Rheumatoid arthritis [Unknown]
